FAERS Safety Report 25859532 (Version 1)
Quarter: 2025Q3

REPORT INFORMATION
  Report Type: Spontaneous
  Country: US (occurrence: None)
  Receive Date: 20250926
  Receipt Date: 20250926
  Transmission Date: 20251020
  Serious: Yes (Disabling, Other)
  Sender: FDA-CTU
  Company Number: None

PATIENT
  Age: 76 Year
  Sex: Female

DRUGS (7)
  1. PROLIA [Suspect]
     Active Substance: DENOSUMAB
     Indication: Osteoporosis
     Route: 042
     Dates: start: 20201101, end: 20231201
  2. CYCLOBENZAPRINE [Concomitant]
     Active Substance: CYCLOBENZAPRINE
  3. LEVALBUTEROL [Concomitant]
     Active Substance: LEVALBUTEROL
  4. ANORO ELLIPTA [Concomitant]
     Active Substance: UMECLIDINIUM BROMIDE\VILANTEROL TRIFENATATE
  5. CALCIUM [Concomitant]
     Active Substance: CALCIUM
  6. VITAMIN D [Concomitant]
     Active Substance: VITAMIN D NOS
  7. ACETAMINOPHEN [Concomitant]
     Active Substance: ACETAMINOPHEN

REACTIONS (9)
  - Urinary tract infection [None]
  - Multiple-drug resistance [None]
  - Foot fracture [None]
  - Spinal fracture [None]
  - Myalgia [None]
  - Arthralgia [None]
  - Gait disturbance [None]
  - Economic problem [None]
  - Hypertension [None]

NARRATIVE: CASE EVENT DATE: 20201101
